FAERS Safety Report 5781003-1 (Version None)
Quarter: 2008Q2

REPORT INFORMATION
  Report Type: 
  Country: None (occurrence: None)
  Receive Date: 20080620
  Receipt Date: 20080611
  Transmission Date: 20081010
  Serious: Yes (Hospitalization)
  Sender: FDA-Public Use
  Company Number: US-ABBOTT-08P-163-0455879-00

PATIENT
  Age: 32 Year
  Sex: Male

DRUGS (2)
  1. KALETRA [Suspect]
     Indication: PROPHYLAXIS AGAINST HIV INFECTION
     Route: 048
     Dates: start: 20080528, end: 20080528
  2. KALETRA [Suspect]
     Dates: start: 20080528, end: 20080528

REACTIONS (3)
  - ACCIDENTAL OVERDOSE [None]
  - SYNCOPE [None]
  - VOMITING [None]
